FAERS Safety Report 6599027-3 (Version None)
Quarter: 2010Q1

REPORT INFORMATION
  Report Type: 
  Country: None (occurrence: None)
  Receive Date: 20100224
  Receipt Date: 20090701
  Transmission Date: 20100710
  Serious: No
  Sender: FDA-Public Use
  Company Number: US-BRISTOL-MYERS SQUIBB COMPANY-14687636

PATIENT
  Age: 68 Year
  Sex: Male

DRUGS (2)
  1. METFORMIN HCL [Suspect]
  2. LANTUS [Suspect]
     Indication: BLOOD GLUCOSE
     Dosage: SOLUTION FOR INJECTION. 1 DF = 120 UNITS, INITIAL DOSE: 100 UNITS.
     Route: 058
     Dates: start: 20080101

REACTIONS (1)
  - RENAL DISORDER [None]
